FAERS Safety Report 17204891 (Version 1)
Quarter: 2019Q4

REPORT INFORMATION
  Report Type: Spontaneous
  Country: US (occurrence: US)
  Receive Date: 20191226
  Receipt Date: 20191226
  Transmission Date: 20200122
  Serious: No
  Sender: FDA-Public Use
  Company Number: US-AMPHASTAR PHARMACEUTICALS, INC.-2078222

PATIENT
  Age: 24 Year
  Sex: Female
  Weight: 102.73 kg

DRUGS (1)
  1. MEDROXYPROGESTERONE ACETATE (SINGLE-DOSE VIAL) [Suspect]
     Active Substance: MEDROXYPROGESTERONE ACETATE
     Indication: INJECTABLE CONTRACEPTION

REACTIONS (7)
  - Myalgia [Recovered/Resolved]
  - Back pain [Recovered/Resolved]
  - Hypersensitivity [Recovered/Resolved]
  - Chest pain [Recovered/Resolved]
  - Dizziness [Recovered/Resolved]
  - Dyspnoea [Recovered/Resolved]
  - Tremor [Recovered/Resolved]

NARRATIVE: CASE EVENT DATE: 20190905
